FAERS Safety Report 9012130 (Version 1)
Quarter: 2013Q1

REPORT INFORMATION
  Report Type: Spontaneous
  Country: US (occurrence: US)
  Receive Date: 20130114
  Receipt Date: 20130114
  Transmission Date: 20140127
  Serious: No
  Sender: FDA-Public Use
  Company Number: US-PFIZER INC-2013011612

PATIENT
  Age: 54 Year
  Sex: Female
  Weight: 59 kg

DRUGS (5)
  1. CHANTIX [Suspect]
     Indication: SMOKING CESSATION THERAPY
     Dosage: 0.5 MG, 1X/DAY
  2. CHANTIX [Suspect]
     Dosage: 1 MG, 2X/DAY
  3. PERCOCET [Concomitant]
     Dosage: OXYCODONE HYDROCHLORIDE 10 MG/PARACETAMOL 325 MG
  4. MORPHINE [Concomitant]
     Dosage: 90 MG, DAILY
  5. BACLOFEN [Concomitant]
     Dosage: 10 MG, 2X/DAY

REACTIONS (6)
  - Abdominal discomfort [Unknown]
  - Headache [Unknown]
  - Weight increased [Unknown]
  - Gait disturbance [Unknown]
  - Abdominal pain upper [Unknown]
  - Discomfort [Unknown]
